FAERS Safety Report 9970350 (Version 1)
Quarter: 2014Q1

REPORT INFORMATION
  Report Type: Spontaneous
  Country: US (occurrence: None)
  Receive Date: 20140305
  Receipt Date: 20140305
  Transmission Date: 20141002
  Serious: Yes (Disabling)
  Sender: FDA-Public Use
  Company Number: None

PATIENT
  Age: 39 Year
  Sex: Male
  Weight: 88 kg

DRUGS (1)
  1. CIALIS [Suspect]
     Dosage: 1 PILL
     Route: 048

REACTIONS (2)
  - Back pain [None]
  - Muscle fatigue [None]
